FAERS Safety Report 5124961-0 (Version None)
Quarter: 2006Q4

REPORT INFORMATION
  Report Type: 
  Country: None (occurrence: None)
  Receive Date: 20061011
  Receipt Date: 20020710
  Transmission Date: 20070319
  Serious: Yes (Hospitalization)
  Sender: FDA-Public Use
  Company Number: US-GLAXOSMITHKLINE-A0373842A

PATIENT
  Age: 60 Year
  Sex: Female

DRUGS (3)
  1. PAXIL [Suspect]
     Indication: ANXIETY
     Dosage: 1TAB PER DAY
     Route: 048
     Dates: start: 20020101, end: 20020101
  2. IMITREX [Suspect]
     Indication: MIGRAINE
     Dosage: 1INJ AS REQUIRED
     Route: 058
     Dates: start: 20020101
  3. ZOLOFT [Concomitant]

REACTIONS (21)
  - AGGRESSION [None]
  - AGITATION [None]
  - ANOSMIA [None]
  - BURNING SENSATION [None]
  - CARDIAC DISORDER [None]
  - CHEST PAIN [None]
  - CONFUSIONAL STATE [None]
  - DYSPNOEA [None]
  - EAR DISCOMFORT [None]
  - EMOTIONAL DISORDER [None]
  - FEELING ABNORMAL [None]
  - HEADACHE [None]
  - HYPERHIDROSIS [None]
  - NASAL DISCOMFORT [None]
  - PARAESTHESIA [None]
  - PARAESTHESIA ORAL [None]
  - PARTNER STRESS [None]
  - PERSONALITY CHANGE [None]
  - SENSORY DISTURBANCE [None]
  - SUICIDAL IDEATION [None]
  - URTICARIA [None]
